FAERS Safety Report 8125182-X (Version None)
Quarter: 2012Q1

REPORT INFORMATION
  Report Type: 
  Country: None (occurrence: None)
  Receive Date: 20120206
  Receipt Date: 20120126
  Transmission Date: 20120608
  Serious: Yes (Other)
  Sender: FDA-Public Use
  Company Number: 2012P1003895

PATIENT
  Age: 65 Year
  Sex: Male

DRUGS (1)
  1. FAMOTIDINE [Suspect]
     Dosage: PO
     Route: 048
     Dates: start: 20100601, end: 20100601

REACTIONS (2)
  - LIVER DISORDER [None]
  - INTERSTITIAL LUNG DISEASE [None]
